FAERS Safety Report 5572380-5 (Version None)
Quarter: 2007Q4

REPORT INFORMATION
  Report Type: 
  Country: None (occurrence: None)
  Receive Date: 20071219
  Receipt Date: 20071212
  Transmission Date: 20080405
  Serious: Yes (Death)
  Sender: FDA-Public Use
  Company Number: 2007-04161

PATIENT

DRUGS (1)
  1. VELCADE [Suspect]
     Indication: MULTIPLE MYELOMA
     Dosage: 1.30 MG/M2,
     Dates: start: 20050101, end: 20060901

REACTIONS (2)
  - BONE MARROW TRANSPLANT [None]
  - COMPLICATIONS OF BONE MARROW TRANSPLANT [None]
